FAERS Safety Report 18995358 (Version 5)
Quarter: 2022Q2

REPORT INFORMATION
  Report Type: Report from Study
  Country: JP (occurrence: JP)
  Receive Date: 20210310
  Receipt Date: 20220502
  Transmission Date: 20220720
  Serious: Yes (Hospitalization, Other)
  Sender: FDA-Public Use
  Company Number: JP-CELLTRION INC.-2021JP002025

PATIENT

DRUGS (29)
  1. INVESTIGATIONAL BIOSIMILARS [Suspect]
     Active Substance: INVESTIGATIONAL BIOSIMILARS
     Indication: HER2 positive gastric cancer
     Dosage: 504.8 MG, QD (EVERY ADMINISTRATION)
     Route: 041
     Dates: start: 20200807, end: 20200807
  2. INVESTIGATIONAL BIOSIMILARS [Suspect]
     Active Substance: INVESTIGATIONAL BIOSIMILARS
     Dosage: 348.6 MG, QD (EVERY ADMINISTRATION)
     Route: 041
     Dates: start: 20200828, end: 20200828
  3. INVESTIGATIONAL BIOSIMILARS [Suspect]
     Active Substance: INVESTIGATIONAL BIOSIMILARS
     Dosage: 348.6 MG, QD (EVERY ADMINISTRATION)
     Route: 041
     Dates: start: 20200918, end: 20200918
  4. INVESTIGATIONAL BIOSIMILARS [Suspect]
     Active Substance: INVESTIGATIONAL BIOSIMILARS
     Dosage: 348.6 MG, QD (EVERY ADMINISTRATION)
     Route: 041
     Dates: start: 20201009, end: 20201009
  5. INVESTIGATIONAL BIOSIMILARS [Suspect]
     Active Substance: INVESTIGATIONAL BIOSIMILARS
     Dosage: 348.6 MG, QD (EVERY ADMINISTRATION)
     Route: 041
     Dates: start: 20201030, end: 20201030
  6. INVESTIGATIONAL BIOSIMILARS [Suspect]
     Active Substance: INVESTIGATIONAL BIOSIMILARS
     Dosage: 348.6 MG, QD (EVERY ADMINISTRATION)
     Route: 041
     Dates: start: 20201211, end: 20201211
  7. INVESTIGATIONAL BIOSIMILARS [Suspect]
     Active Substance: INVESTIGATIONAL BIOSIMILARS
     Dosage: 348.6 MG, QD (EVERY ADMINISTRATION)
     Route: 041
     Dates: start: 20210108, end: 20210108
  8. OXALIPLATIN [Concomitant]
     Active Substance: OXALIPLATIN
     Indication: HER2 positive gastric cancer
     Dosage: UNK
     Dates: start: 20200807, end: 20210108
  9. GIMERACIL\OTERACIL\TEGAFUR [Concomitant]
     Active Substance: GIMERACIL\OTERACIL\TEGAFUR
     Indication: HER2 positive gastric cancer
     Dosage: UNK
     Dates: start: 20200807, end: 20210122
  10. APREPITANT [Concomitant]
     Active Substance: APREPITANT
     Indication: HER2 positive gastric cancer
     Dosage: 80 MG
     Dates: start: 20200918
  11. APREPITANT [Concomitant]
     Active Substance: APREPITANT
     Dosage: UNK
     Dates: start: 20200829
  12. BROTIZOLAM [Concomitant]
     Active Substance: BROTIZOLAM
     Dosage: UNK
     Dates: start: 20200806
  13. ZOLPIDEM TARTRATE [Concomitant]
     Active Substance: ZOLPIDEM TARTRATE
     Indication: Insomnia
     Dosage: UNK
     Dates: start: 20200806
  14. MOSAPRIDE CITRATE DIHYDRATE [Concomitant]
     Active Substance: MOSAPRIDE CITRATE DIHYDRATE
     Dosage: UNK
     Dates: start: 20200806
  15. URSODIOL [Concomitant]
     Active Substance: URSODIOL
     Dosage: UNK
     Dates: start: 20200806
  16. RIKKUNSHITO [ATRACTYLODES LANCEA RHIZOME;CITRUS AURANTIUM PEEL;GLYCYRR [Concomitant]
     Dosage: UNK
     Dates: start: 20200806
  17. MAGNESIUM OXIDE [Concomitant]
     Active Substance: MAGNESIUM OXIDE
     Dosage: UNK
     Dates: start: 20200806
  18. EDOXABAN TOSYLATE [Concomitant]
     Active Substance: EDOXABAN TOSYLATE
     Indication: Pulmonary embolism
     Dosage: UNK
     Dates: start: 20200723, end: 20201210
  19. EDOXABAN TOSYLATE [Concomitant]
     Active Substance: EDOXABAN TOSYLATE
     Dosage: UNK
     Dates: start: 20200809
  20. ROSUVASTATIN [Concomitant]
     Active Substance: ROSUVASTATIN
     Indication: Hypercholesterolaemia
     Dosage: UNK
     Dates: start: 20200822
  21. ROSUVASTATIN [Concomitant]
     Active Substance: ROSUVASTATIN
     Dosage: UNK
  22. RABEPRAZOLE SODIUM [Concomitant]
     Active Substance: RABEPRAZOLE SODIUM
     Indication: Prophylaxis
     Dosage: UNK
  23. RABEPRAZOLE SODIUM [Concomitant]
     Active Substance: RABEPRAZOLE SODIUM
     Dosage: UNK
     Dates: start: 20200822
  24. SODIUM FERROUS CITRATE [Concomitant]
     Active Substance: SODIUM FERROUS CITRATE
     Dosage: UNK
     Dates: start: 20200822
  25. NAFTOPIDIL [Concomitant]
     Active Substance: NAFTOPIDIL
     Dosage: UNK
     Dates: start: 20200822
  26. CELECOXIB [Concomitant]
     Active Substance: CELECOXIB
     Dosage: UNK
     Dates: start: 20200822
  27. QUETIAPINE [Concomitant]
     Active Substance: QUETIAPINE
     Dosage: UNK
     Dates: start: 20200918
  28. GIMERACIL\OTERACIL\TEGAFUR [Concomitant]
     Active Substance: GIMERACIL\OTERACIL\TEGAFUR
     Indication: Product used for unknown indication
     Dosage: UNK
     Dates: start: 20200918
  29. AMPICILLIN SODIUM\SULBACTAM SODIUM [Suspect]
     Active Substance: AMPICILLIN SODIUM\SULBACTAM SODIUM
     Indication: Prophylaxis
     Dosage: UNK, QID EVERY 6 HOURS
     Dates: start: 20200810, end: 20200823

REACTIONS (7)
  - Subclavian vein thrombosis [Recovering/Resolving]
  - Cholangitis [Recovering/Resolving]
  - Pyrexia [Recovered/Resolved]
  - Nail disorder [Not Recovered/Not Resolved]
  - Treatment delayed [Unknown]
  - Off label use [Unknown]
  - Overdose [Unknown]

NARRATIVE: CASE EVENT DATE: 20200808
